FAERS Safety Report 7047118-5 (Version None)
Quarter: 2010Q4

REPORT INFORMATION
  Report Type: 
  Country: None (occurrence: None)
  Receive Date: 20101015
  Receipt Date: 20101006
  Transmission Date: 20110411
  Serious: Yes (Other)
  Sender: FDA-Public Use
  Company Number: US-ASTRAZENECA-2010SE28926

PATIENT
  Age: 81 Year
  Sex: Female
  Weight: 78.9 kg

DRUGS (6)
  1. CRESTOR [Suspect]
     Indication: BLOOD CHOLESTEROL
     Route: 048
  2. PROTONIX [Concomitant]
     Indication: GASTROOESOPHAGEAL REFLUX DISEASE
  3. LOVAZA [Concomitant]
  4. CALCITRATE D [Concomitant]
  5. VIT D [Concomitant]
  6. WHOLE BODY MULTIPLE VITAMIN [Concomitant]

REACTIONS (3)
  - MACULAR DEGENERATION [None]
  - MYALGIA [None]
  - THROMBOSIS [None]
